FAERS Safety Report 7525904-2 (Version None)
Quarter: 2011Q2

REPORT INFORMATION
  Report Type: 
  Country: None (occurrence: None)
  Receive Date: 20110606
  Receipt Date: 20110526
  Transmission Date: 20111010
  Serious: Yes (Hospitalization)
  Sender: FDA-Public Use
  Company Number: B0716461A

PATIENT
  Sex: Female

DRUGS (4)
  1. PREDNISOLONE [Concomitant]
     Route: 048
     Dates: start: 20110201
  2. PROMACTA [Suspect]
     Indication: IDIOPATHIC THROMBOCYTOPENIC PURPURA
     Dosage: 12.5MG PER DAY
     Route: 048
     Dates: start: 20110411
  3. PREDNISOLONE [Concomitant]
     Route: 048
     Dates: start: 20101201
  4. PREDNISOLONE [Concomitant]
     Route: 048
     Dates: start: 20101201

REACTIONS (1)
  - PULMONARY EMBOLISM [None]
